FAERS Safety Report 21279578 (Version 1)
Quarter: 2022Q3

REPORT INFORMATION
  Report Type: Spontaneous
  Country: DE (occurrence: DE)
  Receive Date: 20220901
  Receipt Date: 20220901
  Transmission Date: 20221027
  Serious: Yes (Other)
  Sender: FDA-Public Use
  Company Number: DE-GILEAD-2022-0595122

PATIENT
  Age: 34 Year
  Sex: Male

DRUGS (2)
  1. TRUVADA [Suspect]
     Active Substance: EMTRICITABINE\TENOFOVIR DISOPROXIL FUMARATE
     Indication: HIV infection
     Route: 065
  2. DARUNAVIR\RITONAVIR [Concomitant]
     Active Substance: DARUNAVIR\RITONAVIR
     Indication: HIV infection
     Route: 065

REACTIONS (10)
  - Immune reconstitution inflammatory syndrome [Unknown]
  - Leukoencephalopathy [Unknown]
  - Central nervous system lymphoma [Unknown]
  - HIV-associated neurocognitive disorder [Unknown]
  - Quadriparesis [Unknown]
  - Organic brain syndrome [Unknown]
  - IIIrd nerve paralysis [Unknown]
  - IIIrd nerve paralysis [Unknown]
  - Toxoplasmosis [Unknown]
  - CSF test abnormal [Unknown]
